FAERS Safety Report 10013915 (Version 1)
Quarter: 2014Q1

REPORT INFORMATION
  Report Type: Spontaneous
  Country: US (occurrence: US)
  Receive Date: 20140316
  Receipt Date: 20140316
  Transmission Date: 20141002
  Serious: No
  Sender: FDA-Public Use
  Company Number: US-009507513-1403USA006278

PATIENT
  Sex: Male

DRUGS (6)
  1. PEGINTRON [Suspect]
     Indication: HEPATITIS C
     Dosage: 0.5 ML, QW
     Route: 058
     Dates: start: 20140211
  2. REBETOL [Suspect]
     Indication: HEPATITIS C
     Dosage: 3 IN AM 2 IN PM DAILY
     Route: 048
     Dates: start: 20140211
  3. SOVALDI [Concomitant]
     Dosage: ONE DAILY
  4. CREON (PANCRELIPASE) [Concomitant]
     Dosage: 3 WITH MEALS/ 1 WITH SNACK
  5. HYDROCODONE [Concomitant]
     Dosage: ONE PRN
  6. AMLODIPINE BESYLATE [Concomitant]
     Dosage: ONE DAILY

REACTIONS (1)
  - Insomnia [Unknown]
